FAERS Safety Report 9549673 (Version 2)
Quarter: 2013Q3

REPORT INFORMATION
  Report Type: Spontaneous
  Country: DZ (occurrence: DZ)
  Receive Date: 20130924
  Receipt Date: 20130924
  Transmission Date: 20140515
  Serious: Yes (Other)
  Sender: FDA-Public Use
  Company Number: DZ-ROCHE-1277513

PATIENT
  Age: 42 Year
  Sex: Female

DRUGS (8)
  1. AVASTIN [Suspect]
     Indication: BREAST CANCER METASTATIC
     Route: 042
  2. TAXOL [Suspect]
     Indication: BREAST CANCER METASTATIC
     Route: 065
  3. CARBOPLATIN [Suspect]
     Indication: BREAST CANCER METASTATIC
     Route: 065
  4. PREDNISONE [Concomitant]
  5. SOLU-MEDROL [Concomitant]
     Route: 030
  6. PHENERGAN [Concomitant]
  7. RANITIDINE [Concomitant]
     Route: 048
  8. ZOPHREN [Concomitant]

REACTIONS (3)
  - Hypertension [Recovered/Resolved]
  - Depressed level of consciousness [Recovered/Resolved]
  - Vomiting [Recovered/Resolved]
